FAERS Safety Report 25818040 (Version 1)
Quarter: 2025Q3

REPORT INFORMATION
  Report Type: Spontaneous
  Country: IN (occurrence: IN)
  Receive Date: 20250918
  Receipt Date: 20250918
  Transmission Date: 20251021
  Serious: Yes (Other)
  Sender: RANBAXY
  Company Number: IN-SUN PHARMACEUTICAL INDUSTRIES LTD-2025R1-527855

PATIENT
  Age: 31 Year
  Sex: Male

DRUGS (10)
  1. URSODIOL [Suspect]
     Active Substance: URSODIOL
     Indication: Colitis ulcerative
     Route: 065
  2. URSODIOL [Suspect]
     Active Substance: URSODIOL
     Indication: Cholangitis sclerosing
  3. TOFACITINIB [Suspect]
     Active Substance: TOFACITINIB
     Indication: Cholangitis sclerosing
     Route: 065
  4. TOFACITINIB [Suspect]
     Active Substance: TOFACITINIB
     Indication: Colitis ulcerative
  5. MESALAMINE [Suspect]
     Active Substance: MESALAMINE
     Indication: Cholangitis sclerosing
     Route: 065
  6. MESALAMINE [Suspect]
     Active Substance: MESALAMINE
     Indication: Colitis ulcerative
  7. AZATHIOPRINE [Suspect]
     Active Substance: AZATHIOPRINE
     Indication: Cholangitis sclerosing
     Route: 065
  8. AZATHIOPRINE [Suspect]
     Active Substance: AZATHIOPRINE
     Indication: Colitis ulcerative
  9. THYROXINE [Suspect]
     Active Substance: LEVOTHYROXINE
     Indication: Colitis ulcerative
     Route: 065
  10. THYROXINE [Suspect]
     Active Substance: LEVOTHYROXINE
     Indication: Cholangitis sclerosing

REACTIONS (1)
  - Acute on chronic liver failure [Unknown]

NARRATIVE: CASE EVENT DATE: 20250101
